FAERS Safety Report 5228098-1 (Version None)
Quarter: 2007Q1

REPORT INFORMATION
  Report Type: 
  Country: None (occurrence: None)
  Receive Date: 20070130
  Receipt Date: 20070127
  Transmission Date: 20070707
  Serious: Yes (Life-Threatening, Hospitalization)
  Sender: FDA-Public Use
  Company Number: 233735

PATIENT
  Age: 15 Year
  Sex: Male

DRUGS (1)
  1. NUTROPIN AQ [Suspect]
     Indication: GROWTH HORMONE DEFICIENCY
     Dosage: 1.1 MG, QD, SUBCUTANEOUS
     Route: 058
     Dates: start: 20051005, end: 20061114

REACTIONS (3)
  - ACUTE MYELOID LEUKAEMIA [None]
  - MUSCULOSKELETAL PAIN [None]
  - MYOSITIS [None]
